FAERS Safety Report 9437590 (Version 2)
Quarter: 2013Q4

REPORT INFORMATION
  Report Type: Report from Study
  Country: JP (occurrence: JP)
  Receive Date: 20130802
  Receipt Date: 20131108
  Transmission Date: 20140711
  Serious: Yes (Hospitalization, Other)
  Sender: FDA-Public Use
  Company Number: JP-ROCHE-1256151

PATIENT
  Age: 41 Year
  Sex: Female
  Weight: 66 kg

DRUGS (11)
  1. METHOXY POLYETHYLENE GLYCOL-EPOETIN BETA [Suspect]
     Indication: NEPHROGENIC ANAEMIA
     Route: 058
     Dates: start: 20120723, end: 20130107
  2. OLMETEC [Suspect]
     Indication: PRODUCT USED FOR UNKNOWN INDICATION
     Route: 048
  3. ZYLORIC [Concomitant]
     Route: 048
  4. ANPLAG [Concomitant]
     Route: 048
  5. NORVASC [Concomitant]
     Route: 048
     Dates: end: 20121029
  6. FERROMIA [Concomitant]
     Route: 048
  7. URINORM [Concomitant]
     Route: 048
  8. CALTAN [Concomitant]
     Route: 048
     Dates: start: 20121029
  9. SODIUM BICARBONATE [Concomitant]
     Route: 048
     Dates: start: 20121126
  10. KREMEZIN [Concomitant]
     Indication: GLOMERULONEPHRITIS CHRONIC
     Route: 048
     Dates: start: 20121210
  11. KAYEXALATE [Concomitant]
     Route: 048

REACTIONS (5)
  - Renal failure [Not Recovered/Not Resolved]
  - Hyperkalaemia [Not Recovered/Not Resolved]
  - Hypocalcaemia [Not Recovered/Not Resolved]
  - Hypoalbuminaemia [Not Recovered/Not Resolved]
  - Hypertension [Recovered/Resolved]
